FAERS Safety Report 17364899 (Version 6)
Quarter: 2025Q2

REPORT INFORMATION
  Report Type: Spontaneous
  Country: CZ (occurrence: CZ)
  Receive Date: 20200204
  Receipt Date: 20250626
  Transmission Date: 20250717
  Serious: Yes (Other)
  Sender: AUROBINDO
  Company Number: CZ-TEVA-2020-CZ-1166432

PATIENT
  Age: 81 Year
  Sex: Female

DRUGS (27)
  1. PREGABALIN [Suspect]
     Active Substance: PREGABALIN
     Indication: Post herpetic neuralgia
     Route: 048
  2. PREGABALIN [Suspect]
     Active Substance: PREGABALIN
     Indication: Neuralgia
  3. GABAPENTIN [Suspect]
     Active Substance: GABAPENTIN
     Indication: Neuralgia
     Route: 065
  4. ACETAMINOPHEN\TRAMADOL [Suspect]
     Active Substance: ACETAMINOPHEN\TRAMADOL
     Indication: Back pain
     Dosage: 1 DOSAGE FORM, TWO TIMES A DAY (1 DOSAGE FORM, BID (75/650 MG))
     Route: 048
  5. ACETAMINOPHEN\TRAMADOL [Suspect]
     Active Substance: ACETAMINOPHEN\TRAMADOL
     Indication: Neuralgia
  6. DULOXETINE [Suspect]
     Active Substance: DULOXETINE
     Indication: Neuralgia
     Route: 065
  7. BUPRENORPHINE [Suspect]
     Active Substance: BUPRENORPHINE
     Indication: Neuralgia
     Route: 065
  8. ZOLPIDEM TARTRATE [Concomitant]
     Active Substance: ZOLPIDEM TARTRATE
     Indication: Dyspnoea
     Route: 065
  9. ROSUVASTATIN CALCIUM [Concomitant]
     Active Substance: ROSUVASTATIN CALCIUM
     Indication: Dyspnoea
     Route: 048
  10. CALTRATE [Concomitant]
     Active Substance: CALCIUM CARBONATE
     Indication: Product used for unknown indication
     Route: 065
  11. LANSOPRAZOLE [Concomitant]
     Active Substance: LANSOPRAZOLE
     Indication: Dyspnoea
     Route: 048
  12. DIOSMIN\HESPERIDIN [Concomitant]
     Active Substance: DIOSMIN\HESPERIDIN
     Indication: Dyspnoea
     Route: 065
  13. PROPAFENONE [Concomitant]
     Active Substance: PROPAFENONE
     Indication: Dyspnoea
     Route: 048
  14. PERINDOPRIL [Concomitant]
     Active Substance: PERINDOPRIL
     Indication: Dyspnoea
     Route: 048
  15. XYZAL [Concomitant]
     Active Substance: LEVOCETIRIZINE DIHYDROCHLORIDE
     Indication: Dyspnoea
     Route: 048
  16. OXAZEPAM [Concomitant]
     Active Substance: OXAZEPAM
     Indication: Dyspnoea
     Route: 048
  17. METHYLPREDNISOLONE [Concomitant]
     Active Substance: METHYLPREDNISOLONE
     Indication: Dyspnoea
     Route: 065
  18. VENTOLIN [Concomitant]
     Active Substance: ALBUTEROL SULFATE
     Indication: Dyspnoea
     Route: 065
  19. VENTOLIN [Concomitant]
     Active Substance: ALBUTEROL SULFATE
     Indication: Wheezing
  20. Rismyl [Concomitant]
     Indication: Dyspnoea
     Route: 048
  21. Tamalis [Concomitant]
     Indication: Product used for unknown indication
     Route: 048
  22. TAPENTADOL [Concomitant]
     Active Substance: TAPENTADOL
     Indication: Neuralgia
     Route: 065
  23. QUTENZA [Concomitant]
     Active Substance: CAPSAICIN
     Indication: Pain
     Dosage: 4 DOSAGE FORM, ONCE A DAY (QID (TOTAL OF 4X))
     Route: 065
  24. QUTENZA [Concomitant]
     Active Substance: CAPSAICIN
     Route: 065
     Dates: start: 201805
  25. LIDOCAINE [Concomitant]
     Active Substance: LIDOCAINE
     Indication: Neuralgia
     Dosage: 2 DOSAGE FORM, TWO TIMES A DAY
     Route: 065
  26. LIDOCAINE [Concomitant]
     Active Substance: LIDOCAINE
     Dosage: 1 DOSAGE FORM, ONCE A DAY
     Route: 065
  27. Mecobalamin;Pregabalin [Concomitant]
     Indication: Product used for unknown indication
     Route: 065

REACTIONS (14)
  - Seizure [Recovered/Resolved]
  - Tachycardia [Recovered/Resolved]
  - Hyperhidrosis [Recovered/Resolved]
  - Constipation [Recovered/Resolved]
  - Tremor [Recovered/Resolved]
  - Memory impairment [Recovered/Resolved]
  - Arthralgia [Recovered/Resolved]
  - Alopecia [Not Recovered/Not Resolved]
  - Muscle spasms [Recovered/Resolved]
  - Adverse reaction [Unknown]
  - Chills [Recovered/Resolved]
  - Drug intolerance [Unknown]
  - Product use in unapproved indication [Unknown]
  - Drug ineffective [Unknown]
